FAERS Safety Report 18595892 (Version 1)
Quarter: 2020Q4

REPORT INFORMATION
  Report Type: Spontaneous
  Country: US (occurrence: US)
  Receive Date: 20201209
  Receipt Date: 20201209
  Transmission Date: 20210114
  Serious: No
  Sender: FDA-Public Use
  Company Number: US-SUPERNUS PHARMACEUTICALS, INC.-2020SUP00084

PATIENT
  Sex: Female
  Weight: 131.52 kg

DRUGS (4)
  1. HCTZ/COZAAR [Concomitant]
  2. TROKENDI XR [Suspect]
     Active Substance: TOPIRAMATE
     Indication: PAIN MANAGEMENT
  3. OXYCODONE [Concomitant]
     Active Substance: OXYCODONE
     Dosage: UNK, 2X/DAY
  4. TROKENDI XR [Suspect]
     Active Substance: TOPIRAMATE
     Indication: NERVOUS SYSTEM DISORDER
     Dosage: UNK

REACTIONS (2)
  - Off label use [Unknown]
  - Weight increased [Not Recovered/Not Resolved]
